FAERS Safety Report 6989771-8 (Version None)
Quarter: 2010Q3

REPORT INFORMATION
  Report Type: 
  Country: None (occurrence: None)
  Receive Date: 20100916
  Receipt Date: 20100303
  Transmission Date: 20110219
  Serious: Yes (Other)
  Sender: FDA-Public Use
  Company Number: CA-PFIZER INC-2010006439

PATIENT
  Sex: Male
  Weight: 90.703 kg

DRUGS (8)
  1. LYRICA [Suspect]
     Indication: BURNING SENSATION
     Dosage: 50 MG, 1X/DAY
     Dates: start: 20091008
  2. LYRICA [Suspect]
     Dosage: 100 MG, 1X/DAY
     Route: 048
     Dates: start: 20091009, end: 20091001
  3. NOVO-NORTRIPTYLINE [Concomitant]
     Indication: BURNING SENSATION
     Dosage: 25 MG INCR TO 100MG
  4. RAMIPRIL [Concomitant]
     Dosage: 10 MG, UNK
  5. HYDROCHLOROTHIAZIDE [Concomitant]
     Dosage: 25 MG, UNK
  6. ASPIRINE [Concomitant]
     Dosage: 80 MG, UNK
     Route: 048
  7. LIPITOR [Concomitant]
     Dosage: 80 MG, UNK
  8. AMLODIPINE [Concomitant]
     Dosage: 5 MG, UNK

REACTIONS (3)
  - MONOPLEGIA [None]
  - MUSCULAR WEAKNESS [None]
  - NAUSEA [None]
